FAERS Safety Report 16740860 (Version 1)
Quarter: 2019Q3

REPORT INFORMATION
  Report Type: Spontaneous
  Country: US (occurrence: US)
  Receive Date: 20190826
  Receipt Date: 20190826
  Transmission Date: 20191005
  Serious: No
  Sender: FDA-Public Use
  Company Number: US-AKRON, INC.-2073653

PATIENT
  Sex: Male

DRUGS (1)
  1. SUNMARK EYE ITCH RELIEF [Suspect]
     Active Substance: KETOTIFEN FUMARATE
     Route: 047

REACTIONS (1)
  - Drug ineffective [None]
